FAERS Safety Report 9835678 (Version 2)
Quarter: 2014Q1

REPORT INFORMATION
  Report Type: Spontaneous
  Country: JP (occurrence: JP)
  Receive Date: 20140122
  Receipt Date: 20140122
  Transmission Date: 20141002
  Serious: Yes (Other)
  Sender: FDA-Public Use
  Company Number: JP-BRISTOL-MYERS SQUIBB COMPANY-19917376

PATIENT
  Age: 74 Year
  Sex: Male
  Weight: 70.4 kg

DRUGS (1)
  1. ELIQUIS [Suspect]
     Dosage: PRODUCT FORMULATION:ELIQUIS TABS 5MG
     Route: 048
     Dates: start: 20130918, end: 20131203

REACTIONS (1)
  - Oedema [Recovered/Resolved]
